FAERS Safety Report 9835592 (Version 1)
Quarter: 2014Q1

REPORT INFORMATION
  Report Type: Spontaneous
  Country: US (occurrence: US)
  Receive Date: 20140122
  Receipt Date: 20140122
  Transmission Date: 20141002
  Serious: Yes (Hospitalization)
  Sender: FDA-Public Use
  Company Number: US-ASTRAZENECA-2014SE03762

PATIENT
  Age: 71 Year
  Sex: Female

DRUGS (1)
  1. BRILINTA [Suspect]
     Indication: PERCUTANEOUS CORONARY INTERVENTION
     Route: 048
     Dates: start: 201401

REACTIONS (3)
  - Haemoglobin decreased [Unknown]
  - Haemorrhage [Unknown]
  - Post procedural haematoma [Unknown]
